FAERS Safety Report 6869733-1 (Version None)
Quarter: 2010Q3

REPORT INFORMATION
  Report Type: 
  Country: None (occurrence: None)
  Receive Date: 20100722
  Receipt Date: 20081002
  Transmission Date: 20110219
  Serious: No
  Sender: FDA-Public Use
  Company Number: US-PFIZER INC-2008067279

PATIENT
  Sex: Female

DRUGS (1)
  1. CHANTIX [Suspect]
     Indication: SMOKING CESSATION THERAPY
     Dates: start: 20080808

REACTIONS (5)
  - ABDOMINAL DISCOMFORT [None]
  - DRY MOUTH [None]
  - NAUSEA [None]
  - POOR QUALITY SLEEP [None]
  - SLEEP DISORDER [None]
